FAERS Safety Report 19232520 (Version 1)
Quarter: 2021Q2

REPORT INFORMATION
  Report Type: Spontaneous
  Country: US (occurrence: US)
  Receive Date: 20210507
  Receipt Date: 20210507
  Transmission Date: 20210717
  Serious: No
  Sender: FDA-Public Use
  Company Number: US-TEVA-2021-US-1902987

PATIENT
  Age: 38 Year
  Sex: Female

DRUGS (1)
  1. AJOVY [Suspect]
     Active Substance: FREMANEZUMAB-VFRM
     Indication: MIGRAINE
     Dosage: 1.5ML
     Route: 065
     Dates: start: 202103

REACTIONS (4)
  - Photophobia [Unknown]
  - Needle issue [Unknown]
  - Drug dose omission by device [Unknown]
  - Hyperacusis [Unknown]

NARRATIVE: CASE EVENT DATE: 2021
